FAERS Safety Report 17529027 (Version 1)
Quarter: 2020Q1

REPORT INFORMATION
  Report Type: Spontaneous
  Country: FR (occurrence: FR)
  Receive Date: 20200311
  Receipt Date: 20200311
  Transmission Date: 20200409
  Serious: Yes (Hospitalization)
  Sender: FDA-Public Use
  Company Number: FR-MYLANLABS-2020M1025706

PATIENT
  Age: 71 Year
  Sex: Male
  Weight: 70 kg

DRUGS (12)
  1. VALACICLOVIR [Concomitant]
     Active Substance: VALACYCLOVIR HYDROCHLORIDE
     Dosage: UNK
  2. DOLIPRANE [Concomitant]
     Active Substance: ACETAMINOPHEN
     Dosage: UNK
  3. PRIMPERAN [Concomitant]
     Active Substance: METOCLOPRAMIDE HYDROCHLORIDE
     Dosage: UNK
  4. GEMCITABINE SANDOZ [Concomitant]
     Active Substance: GEMCITABINE\GEMCITABINE HYDROCHLORIDE
     Dosage: UNK
  5. HUMALOG [Concomitant]
     Active Substance: INSULIN LISPRO
     Dosage: UNK
  6. ZOPICLONE [Concomitant]
     Active Substance: ZOPICLONE
     Dosage: UNK
  7. WELLVONE [Concomitant]
     Active Substance: ATOVAQUONE
     Dosage: UNK
  8. PREGABALINE [Concomitant]
     Active Substance: PREGABALIN
     Dosage: UNK
  9. METHOTREXATE MYLAN [Suspect]
     Active Substance: METHOTREXATE SODIUM
     Indication: ANGIOCENTRIC LYMPHOMA
     Dosage: 3.8 GRAM, QD
     Route: 042
     Dates: start: 20200103, end: 20200103
  10. MIANSERINE                         /00390602/ [Concomitant]
     Active Substance: MIANSERIN HYDROCHLORIDE
     Dosage: UNK
  11. NEOFORDEX [Concomitant]
     Active Substance: DEXAMETHASONE ACETATE
     Dosage: UNK
  12. MICROLAX                           /01109601/ [Concomitant]
     Dosage: UNK

REACTIONS (11)
  - Disorientation [Recovering/Resolving]
  - Pyrexia [Recovered/Resolved]
  - Somnolence [Recovering/Resolving]
  - Hypernatraemia [Recovered/Resolved]
  - Confusional state [Recovering/Resolving]
  - Overdose [Recovered/Resolved]
  - Toxic encephalopathy [Recovered/Resolved]
  - Thrombocytopenia [Recovered/Resolved]
  - Acute kidney injury [Recovering/Resolving]
  - Hypoxia [Recovered/Resolved]
  - Mucosal inflammation [Recovering/Resolving]

NARRATIVE: CASE EVENT DATE: 20200103
